FAERS Safety Report 9405453 (Version 1)
Quarter: 2013Q3

REPORT INFORMATION
  Report Type: Spontaneous
  Country: DE (occurrence: DE)
  Receive Date: 20130717
  Receipt Date: 20130717
  Transmission Date: 20140515
  Serious: Yes (Other)
  Sender: FDA-Public Use
  Company Number: DE-AMGEN-DEUSP2013049488

PATIENT
  Age: 75 Year
  Sex: Female

DRUGS (5)
  1. PROLIA [Suspect]
     Indication: OSTEOPOROSIS
     Dosage: UNK
     Dates: start: 201007, end: 201207
  2. EXFORGE [Concomitant]
     Indication: CARDIAC FAILURE
     Dosage: UNK UNK, QD
     Dates: start: 2010
  3. TORASEMIDE [Concomitant]
     Indication: CARDIAC FAILURE
     Dosage: UNK UNK, QD
     Dates: start: 2010
  4. IBUPROFEN [Concomitant]
     Indication: OSTEOPOROSIS
     Dosage: UNK UNK, QD
     Dates: start: 2010
  5. NOVAMINSULFON [Concomitant]
     Indication: OSTEOPOROSIS
     Dosage: 4 X 20 DROPS
     Dates: start: 2010

REACTIONS (1)
  - Depression [Recovered/Resolved]
